FAERS Safety Report 9863760 (Version 1)
Quarter: 2014Q1

REPORT INFORMATION
  Report Type: Spontaneous
  Country: US (occurrence: US)
  Receive Date: 20140203
  Receipt Date: 20140203
  Transmission Date: 20141002
  Serious: Yes (Other)
  Sender: FDA-Public Use
  Company Number: US-PFIZER INC-2014029757

PATIENT
  Age: 27 Year
  Sex: Female
  Weight: 65.76 kg

DRUGS (2)
  1. LYRICA [Suspect]
     Indication: FIBROMYALGIA
     Dosage: 150 MG, 3X/DAY
     Dates: start: 2009, end: 2010
  2. KLOR-CON [Concomitant]
     Indication: HYPOKALAEMIA
     Dosage: 40 MEQ, 1X/DAY

REACTIONS (1)
  - Weight increased [Recovered/Resolved]
